FAERS Safety Report 8377609-6 (Version None)
Quarter: 2012Q2

REPORT INFORMATION
  Report Type: 
  Country: None (occurrence: None)
  Receive Date: 20120522
  Receipt Date: 20120415
  Transmission Date: 20120825
  Serious: Yes (Other)
  Sender: FDA-Public Use
  Company Number: US-PFIZER INC-2012120081

PATIENT
  Sex: Male

DRUGS (1)
  1. VIAGRA [Suspect]
     Dosage: 50 MG, UNK

REACTIONS (3)
  - BLOOD PRESSURE DECREASED [None]
  - ATRIAL FIBRILLATION [None]
  - FLUSHING [None]
